FAERS Safety Report 7894141-4 (Version None)
Quarter: 2011Q4

REPORT INFORMATION
  Report Type: 
  Country: None (occurrence: None)
  Receive Date: 20111104
  Receipt Date: 20111101
  Transmission Date: 20120403
  Serious: Yes (Hospitalization, Other)
  Sender: FDA-Public Use
  Company Number: US-BAXTER-2011BH029598

PATIENT
  Age: 15 Year
  Sex: Male
  Weight: 46 kg

DRUGS (5)
  1. CEFEPIME [Suspect]
     Indication: RESPIRATORY TRACT INFECTION
     Route: 042
  2. TOBRAMYCIN [Concomitant]
     Indication: RESPIRATORY TRACT INFECTION
     Route: 042
  3. SULFAMETHOXAZOLE AND TRIMETHOPRIM [Concomitant]
     Indication: RESPIRATORY TRACT INFECTION
     Route: 048
  4. VANCOMYCIN [Concomitant]
     Indication: RESPIRATORY TRACT INFECTION
     Route: 042
  5. GENTAMICIN [Suspect]
     Indication: RESPIRATORY TRACT INFECTION
     Route: 042

REACTIONS (2)
  - ENCEPHALOPATHY [None]
  - RENAL FAILURE ACUTE [None]
